FAERS Safety Report 9840245 (Version 1)
Quarter: 2014Q1

REPORT INFORMATION
  Report Type: Spontaneous
  Country: DE (occurrence: DE)
  Receive Date: 20140124
  Receipt Date: 20140124
  Transmission Date: 20141002
  Serious: Yes (Hospitalization)
  Sender: FDA-Public Use
  Company Number: DE-JNJFOC-20140109664

PATIENT
  Age: 57 Year
  Sex: Female
  Weight: 61 kg

DRUGS (2)
  1. XARELTO [Suspect]
     Indication: PRODUCT USED FOR UNKNOWN INDICATION
     Route: 048
     Dates: start: 20131030, end: 20131107
  2. PACLITAXEL [Concomitant]
     Indication: CHEMOTHERAPY
     Route: 065

REACTIONS (1)
  - Thrombocytopenia [Recovered/Resolved]
